FAERS Safety Report 9882566 (Version 1)
Quarter: 2014Q1

REPORT INFORMATION
  Report Type: Spontaneous
  Country: FR (occurrence: FR)
  Receive Date: 20140207
  Receipt Date: 20140207
  Transmission Date: 20141002
  Serious: Yes (Other)
  Sender: FDA-Public Use
  Company Number: FR-WATSON-2014-01889

PATIENT
  Age: 80 Year
  Sex: Female

DRUGS (1)
  1. ZOLPIDEM ARROW [Suspect]
     Indication: PRODUCT USED FOR UNKNOWN INDICATION
     Dosage: 10 MG, DAILY
     Route: 048
     Dates: start: 20131117, end: 20131121

REACTIONS (2)
  - Hallucination [Recovered/Resolved]
  - Speech disorder [Recovered/Resolved]
